FAERS Safety Report 6658699-5 (Version None)
Quarter: 2010Q1

REPORT INFORMATION
  Report Type: 
  Country: None (occurrence: None)
  Receive Date: 20100330
  Receipt Date: 20100319
  Transmission Date: 20100710
  Serious: Yes (Hospitalization)
  Sender: FDA-Public Use
  Company Number: PHHY2010US17387

PATIENT
  Sex: Male
  Weight: 91.2 kg

DRUGS (4)
  1. ERL 080A ERL+TAB [Suspect]
     Indication: RENAL TRANSPLANT
     Dosage: 1080 MG PER DAY
     Route: 048
     Dates: start: 20100111
  2. ERL 080A ERL+TAB [Suspect]
     Indication: IMMUNOSUPPRESSION
  3. TACROLIMUS [Concomitant]
     Indication: IMMUNOSUPPRESSION
     Dosage: 15 MG PER DAY
     Dates: start: 20091113, end: 20100315
  4. PREDNISONE [Concomitant]
     Indication: STEROID THERAPY
     Dosage: 8 MG PER DAY
     Dates: start: 20100210

REACTIONS (2)
  - CATHETER PLACEMENT [None]
  - CYTOMEGALOVIRUS VIRAEMIA [None]
